FAERS Safety Report 15988965 (Version 2)
Quarter: 2019Q3

REPORT INFORMATION
  Report Type: Spontaneous
  Country: US (occurrence: US)
  Receive Date: 20190221
  Receipt Date: 20190926
  Transmission Date: 20191004
  Serious: Yes (Other)
  Sender: FDA-Public Use
  Company Number: US-HBP-2019US018370

PATIENT
  Sex: Female

DRUGS (1)
  1. VALCHLOR [Suspect]
     Active Substance: MECHLORETHAMINE
     Indication: CUTANEOUS T-CELL LYMPHOMA
     Dosage: UNK, 2/WEEK
     Route: 061
     Dates: start: 20180815

REACTIONS (4)
  - Off label use [Unknown]
  - Condition aggravated [Unknown]
  - Neoplasm malignant [Unknown]
  - Rash [Unknown]
